FAERS Safety Report 9565774 (Version 2)
Quarter: 2013Q3

REPORT INFORMATION
  Report Type: Report from Study
  Country: US (occurrence: US)
  Receive Date: 20130930
  Receipt Date: 20130930
  Transmission Date: 20140515
  Serious: Yes (Other)
  Sender: FDA-Public Use
  Company Number: US-BAXTER-2013BAX035917

PATIENT
  Age: 42 Year
  Sex: Female
  Weight: 109 kg

DRUGS (12)
  1. GAMMAGARD LIQUID [Suspect]
     Indication: IMMUNODEFICIENCY COMMON VARIABLE
     Route: 042
     Dates: start: 201304
  2. GAMMAGARD LIQUID [Suspect]
     Route: 042
     Dates: start: 201308, end: 201308
  3. GAMMAGARD LIQUID [Suspect]
     Route: 042
     Dates: start: 20130907, end: 20130907
  4. PREDNISONE [Concomitant]
     Indication: NEOPLASM
     Route: 048
     Dates: start: 201208
  5. METHOTREXATE [Concomitant]
     Indication: NEOPLASM
     Route: 048
     Dates: start: 201212
  6. FOLIC ACID [Concomitant]
     Indication: PRODUCT USED FOR UNKNOWN INDICATION
     Route: 048
     Dates: start: 201212
  7. NEXIUM [Concomitant]
     Indication: PRODUCT USED FOR UNKNOWN INDICATION
     Route: 048
     Dates: start: 201208
  8. HYDROCHLOROTHIAZIDE [Concomitant]
     Indication: HYPERTENSION
     Route: 048
     Dates: start: 201308
  9. LANTUS [Concomitant]
     Indication: DIABETES MELLITUS
     Dosage: 2 UNITS
     Route: 058
     Dates: start: 201304
  10. NOVOLOG [Concomitant]
     Indication: DIABETES MELLITUS
     Route: 058
     Dates: start: 201304
  11. NEURONTIN [Concomitant]
     Indication: NEUROPATHY PERIPHERAL
     Route: 048
     Dates: start: 201309
  12. FLEXERIL [Concomitant]
     Indication: NEUROPATHY PERIPHERAL
     Route: 048
     Dates: start: 201209

REACTIONS (5)
  - Renal pain [Not Recovered/Not Resolved]
  - Neoplasm progression [Not Recovered/Not Resolved]
  - Neuropathy peripheral [Unknown]
  - Back pain [Not Recovered/Not Resolved]
  - Headache [Not Recovered/Not Resolved]
